FAERS Safety Report 13502012 (Version 1)
Quarter: 2017Q2

REPORT INFORMATION
  Report Type: Spontaneous
  Country: JP (occurrence: JP)
  Receive Date: 20170502
  Receipt Date: 20170502
  Transmission Date: 20170830
  Serious: Yes (Other)
  Sender: FDA-Public Use
  Company Number: JP-TAKEDA-2017MPI003854

PATIENT
  Age: 66 Year
  Sex: Male

DRUGS (4)
  1. VELCADE [Suspect]
     Active Substance: BORTEZOMIB
     Dosage: 1.3 MG, 1/WEEK
     Route: 065
     Dates: start: 20170308, end: 201703
  2. VELCADE [Suspect]
     Active Substance: BORTEZOMIB
     Indication: PLASMA CELL MYELOMA
     Dosage: 1.3 MG, UNK
     Route: 065
     Dates: start: 2017, end: 2017
  3. VELCADE [Suspect]
     Active Substance: BORTEZOMIB
     Dosage: 1.3 MG, UNK
     Route: 065
     Dates: start: 20170215, end: 201702
  4. DEXAMETHASONE. [Concomitant]
     Active Substance: DEXAMETHASONE
     Indication: PLASMA CELL MYELOMA
     Dosage: UNK
     Route: 065
     Dates: start: 20170215

REACTIONS (1)
  - Skin necrosis [Unknown]

NARRATIVE: CASE EVENT DATE: 20170424
